FAERS Safety Report 5714191-3 (Version None)
Quarter: 2008Q2

REPORT INFORMATION
  Report Type: 
  Country: None (occurrence: None)
  Receive Date: 20080423
  Receipt Date: 20080417
  Transmission Date: 20081010
  Serious: Yes (Death)
  Sender: FDA-Public Use
  Company Number: PHBS2008IN04184

PATIENT
  Sex: Female
  Weight: 1.2 kg

DRUGS (3)
  1. IMATINIB [Suspect]
     Route: 064
  2. IRON SUPPLEMENTS [Concomitant]
     Route: 064
  3. FOLIC ACID [Concomitant]
     Route: 064

REACTIONS (5)
  - DEATH NEONATAL [None]
  - DRUG EXPOSURE DURING PREGNANCY [None]
  - PREMATURE BABY [None]
  - SMALL FOR DATES BABY [None]
  - TWIN PREGNANCY [None]
